FAERS Safety Report 8153051-8 (Version None)
Quarter: 2012Q1

REPORT INFORMATION
  Report Type: 
  Country: None (occurrence: None)
  Receive Date: 20120221
  Receipt Date: 20120215
  Transmission Date: 20120608
  Serious: Yes (Other)
  Sender: FDA-Public Use
  Company Number: DE-PFIZER INC-2012034004

PATIENT
  Sex: Female
  Weight: 3.82 kg

DRUGS (4)
  1. SERTRALINE HYDROCHLORIDE [Suspect]
     Indication: PERSONALITY DISORDER
     Dosage: 150 MG/D; 0.- 38.2. GESTATIONAL WEEK
     Route: 064
  2. RISPERDAL [Suspect]
     Indication: PERSONALITY DISORDER
     Dosage: 1 MG/D, 0. - 38.2 GESTATIONAL WEEK
     Route: 064
     Dates: start: 20101207, end: 20110901
  3. INSULIN [Concomitant]
     Indication: GESTATIONAL DIABETES
     Dosage: 25-40 IU/D ON DEMAND, 3RD TRIMESTER
     Route: 064
     Dates: start: 20110101
  4. PROTAPHAN [Concomitant]
     Indication: GESTATIONAL DIABETES
     Dosage: 35 IU/D, 3RD TRIMESTER
     Route: 064
     Dates: start: 20110101

REACTIONS (6)
  - NEONATAL RESPIRATORY DISTRESS SYNDROME [None]
  - CEREBRAL CALCIFICATION [None]
  - MATERNAL EXPOSURE TIMING UNSPECIFIED [None]
  - HYPERTONIA NEONATAL [None]
  - FOETAL MACROSOMIA [None]
  - BLOOD GLUCOSE DECREASED [None]
